FAERS Safety Report 19229794 (Version 2)
Quarter: 2021Q2

REPORT INFORMATION
  Report Type: Spontaneous
  Country: SA (occurrence: SA)
  Receive Date: 20210507
  Receipt Date: 20210616
  Transmission Date: 20210717
  Serious: Yes (Hospitalization, Other)
  Sender: FDA-Public Use
  Company Number: SA-EISAI MEDICAL RESEARCH-EC-2021-092262

PATIENT
  Age: 68 Year
  Sex: Female
  Weight: 49 kg

DRUGS (3)
  1. LENVATINIB [Suspect]
     Active Substance: LENVATINIB
     Route: 048
     Dates: start: 202003, end: 202005
  2. LENVATINIB [Suspect]
     Active Substance: LENVATINIB
     Route: 048
     Dates: start: 2019, end: 2020
  3. LENVATINIB [Suspect]
     Active Substance: LENVATINIB
     Indication: THYROID CANCER METASTATIC
     Route: 048
     Dates: start: 201907, end: 2019

REACTIONS (6)
  - Diarrhoea [Unknown]
  - Cardiomyopathy [Unknown]
  - Acute kidney injury [Recovering/Resolving]
  - Nephrotic syndrome [Recovering/Resolving]
  - Thrombocytopenia [Recovering/Resolving]
  - Anaemia [Recovering/Resolving]

NARRATIVE: CASE EVENT DATE: 2019
